FAERS Safety Report 8952792 (Version 1)
Quarter: 2012Q4

REPORT INFORMATION
  Report Type: Report from Study
  Country: US (occurrence: US)
  Receive Date: 20121204
  Receipt Date: 20121204
  Transmission Date: 20130627
  Serious: Yes (Hospitalization)
  Sender: FDA-Public Use
  Company Number: US-ROCHE-1160885

PATIENT

DRUGS (2)
  1. BEVACIZUMAB [Suspect]
     Indication: ANAPLASTIC ASTROCYTOMA
     Route: 065
     Dates: start: 20080128, end: 20080704
  2. ERLOTINIB [Suspect]
     Indication: ANAPLASTIC ASTROCYTOMA
     Route: 065
     Dates: start: 20080128, end: 20080704

REACTIONS (1)
  - Osteonecrosis [Unknown]
